FAERS Safety Report 11877150 (Version 1)
Quarter: 2015Q4

REPORT INFORMATION
  Report Type: Spontaneous
  Country: US (occurrence: US)
  Receive Date: 20151229
  Receipt Date: 20151229
  Transmission Date: 20160305
  Serious: No
  Sender: FDA-Public Use
  Company Number: US-AMGEN-USASP2015134735

PATIENT
  Age: 31 Year
  Sex: Male

DRUGS (3)
  1. ENBREL [Suspect]
     Active Substance: ETANERCEPT
     Indication: PSORIATIC ARTHROPATHY
     Dosage: 50 MG, QWK
     Route: 065
     Dates: start: 20151204
  2. METHOTREXATE [Concomitant]
     Active Substance: METHOTREXATE
     Dosage: 2.5 MG, UNK
  3. METHIMAZOLE. [Concomitant]
     Active Substance: METHIMAZOLE
     Dosage: 10 MG, UNK

REACTIONS (4)
  - Asthenia [Unknown]
  - Sinus congestion [Unknown]
  - Nasopharyngitis [Unknown]
  - Headache [Unknown]

NARRATIVE: CASE EVENT DATE: 20151209
